FAERS Safety Report 5810188-3 (Version None)
Quarter: 2008Q3

REPORT INFORMATION
  Report Type: 
  Country: None (occurrence: None)
  Receive Date: 20080715
  Receipt Date: 20071002
  Transmission Date: 20090109
  Serious: No
  Sender: FDA-Public Use
  Company Number: A0685678A

PATIENT
  Age: 55 Year
  Sex: Male

DRUGS (1)
  1. IMITREX [Suspect]
     Indication: HEADACHE
     Dosage: 100MG VARIABLE DOSE
     Route: 048
     Dates: start: 20070701

REACTIONS (2)
  - DISABILITY [None]
  - FEELING ABNORMAL [None]
